FAERS Safety Report 8618587-1 (Version None)
Quarter: 2012Q3

REPORT INFORMATION
  Report Type: 
  Country: None (occurrence: None)
  Receive Date: 20120824
  Receipt Date: 20120820
  Transmission Date: 20120928
  Serious: No
  Sender: FDA-Public Use
  Company Number: US-PFIZER INC-2012205113

PATIENT
  Age: 69 Year
  Sex: Female
  Weight: 95.238 kg

DRUGS (2)
  1. BISOPROLOL [Concomitant]
     Indication: HYPERTENSION
     Dosage: 10 MG, DAILY
  2. TIKOSYN [Suspect]
     Indication: HEART RATE IRREGULAR
     Dosage: 250 MG, 2X/DAY
     Dates: start: 20120801

REACTIONS (2)
  - DYSGEUSIA [None]
  - POLLAKIURIA [None]
